FAERS Safety Report 11792123 (Version 7)
Quarter: 2016Q2

REPORT INFORMATION
  Report Type: Spontaneous
  Country: US (occurrence: US)
  Receive Date: 20151201
  Receipt Date: 20160502
  Transmission Date: 20160815
  Serious: Yes (Hospitalization)
  Sender: FDA-Public Use
  Company Number: US-ACTELION PHARMACEUTICALS US, INC.-A-NJ2015-125463

PATIENT
  Age: 47 Year
  Sex: Female

DRUGS (5)
  1. WARFARIN [Concomitant]
     Active Substance: WARFARIN
  2. RIOCIGUAT [Concomitant]
     Active Substance: RIOCIGUAT
  3. VELETRI [Suspect]
     Active Substance: EPOPROSTENOL
     Indication: PULMONARY ARTERIAL HYPERTENSION
     Dosage: 12 NG/KG, PER MIN
     Route: 042
     Dates: start: 20150928
  4. TYVASO [Concomitant]
     Active Substance: TREPROSTINIL
  5. TRACLEER [Suspect]
     Active Substance: BOSENTAN
     Indication: PULMONARY ARTERIAL HYPERTENSION
     Dosage: UNK
     Route: 048
     Dates: start: 20150116

REACTIONS (16)
  - Pain in jaw [Unknown]
  - Weight fluctuation [Unknown]
  - Abdominal distension [Unknown]
  - Ascites [Not Recovered/Not Resolved]
  - Paracentesis [Recovering/Resolving]
  - Gallbladder disorder [Unknown]
  - Dyspnoea [Unknown]
  - Vomiting [Unknown]
  - Nausea [Unknown]
  - Fluid retention [Recovering/Resolving]
  - Diarrhoea [Unknown]
  - Headache [Unknown]
  - Clostridium difficile infection [Unknown]
  - Pulmonary arterial pressure increased [Unknown]
  - Flushing [Unknown]
  - Muscle spasms [Unknown]

NARRATIVE: CASE EVENT DATE: 20151112
